FAERS Safety Report 19266563 (Version 2)
Quarter: 2021Q2

REPORT INFORMATION
  Report Type: Report from Study
  Country: AR (occurrence: AR)
  Receive Date: 20210517
  Receipt Date: 20210529
  Transmission Date: 20210717
  Serious: Yes (Hospitalization)
  Sender: FDA-Public Use
  Company Number: NVSC2021AR105078

PATIENT
  Age: 45 Year
  Sex: Female

DRUGS (4)
  1. ENTRESTO [Suspect]
     Active Substance: SACUBITRIL\VALSARTAN
     Indication: CONGESTIVE CARDIOMYOPATHY
     Dosage: 50 MG, BID (HALF TABLET IN THE MORNING AND HALF TABLET AT NIGHT)
     Route: 048
     Dates: start: 202104
  2. ATORVASTATIN [Concomitant]
     Active Substance: ATORVASTATIN
     Indication: PRODUCT USED FOR UNKNOWN INDICATION
     Dosage: 40 MG, QD
     Route: 065
  3. SPIRONOLACTONE. [Concomitant]
     Active Substance: SPIRONOLACTONE
     Indication: PRODUCT USED FOR UNKNOWN INDICATION
     Dosage: 25 MG, UNKNOWN
     Route: 065
  4. CARVEDILOL. [Concomitant]
     Active Substance: CARVEDILOL
     Indication: PRODUCT USED FOR UNKNOWN INDICATION
     Dosage: 6.25 MG, UNKNOWN
     Route: 065

REACTIONS (14)
  - Wrong technique in product usage process [Unknown]
  - Weight fluctuation [Unknown]
  - Arthralgia [Unknown]
  - Renal pain [Unknown]
  - Back pain [Unknown]
  - Fatigue [Unknown]
  - Gait disturbance [Unknown]
  - Cardiac failure [Unknown]
  - Urine flow decreased [Unknown]
  - Fluid retention [Unknown]
  - Swelling [Unknown]
  - General physical health deterioration [Unknown]
  - Product use in unapproved indication [Unknown]
  - Chest pain [Unknown]

NARRATIVE: CASE EVENT DATE: 20210410
